FAERS Safety Report 4726953-X (Version None)
Quarter: 2005Q3

REPORT INFORMATION
  Report Type: 
  Country: None (occurrence: None)
  Receive Date: 20050728
  Receipt Date: 20050722
  Transmission Date: 20060218
  Serious: Yes (Death, Life-Threatening, Other)
  Sender: FDA-Public Use
  Company Number: JP-JNJFOC-20050607330

PATIENT
  Sex: Male
  Weight: 50 kg

DRUGS (38)
  1. FENTANYL [Suspect]
     Route: 062
     Dates: start: 20050621, end: 20050627
  2. FENTANYL [Suspect]
     Indication: CANCER PAIN
     Route: 062
     Dates: start: 20050621, end: 20050627
  3. DUROTEP [Suspect]
     Indication: CANCER PAIN
     Route: 062
     Dates: start: 20050627, end: 20050705
  4. OPSO [Suspect]
     Indication: CANCER PAIN
     Dosage: AS NEEDED
     Route: 048
  5. OPSO [Concomitant]
     Route: 065
  6. LASIX [Concomitant]
     Dosage: AS NEEDED
     Route: 048
  7. LASIX [Concomitant]
     Route: 048
  8. ALDACTONE [Concomitant]
     Route: 048
  9. ASPIRIN [Concomitant]
     Dosage: AS NEEDED
     Route: 048
  10. ASPIRIN [Concomitant]
     Route: 048
  11. GASTER D [Concomitant]
     Dosage: AS NEEDED
     Route: 048
  12. GASTER D [Concomitant]
     Indication: GASTROINTESTINAL DISORDER THERAPY
     Route: 048
  13. TENORMIN [Concomitant]
     Dosage: AS NEEDED
     Route: 048
  14. TENORMIN [Concomitant]
     Indication: HYPERTENSION
     Route: 048
  15. NITOROL R [Concomitant]
     Dosage: AS NEEDED
     Route: 048
  16. NITOROL R [Concomitant]
     Route: 048
  17. SIGMART [Concomitant]
     Dosage: AS NEEDED
     Route: 048
  18. SIGMART [Concomitant]
     Route: 048
  19. WARFARIN SODIUM [Concomitant]
     Dosage: AS NEEDED
     Route: 048
  20. WARFARIN SODIUM [Concomitant]
     Route: 048
  21. KALIMATE [Concomitant]
     Route: 048
  22. MAGNESIUM OXIDE [Concomitant]
     Route: 048
  23. MAGNESIUM OXIDE [Concomitant]
     Indication: CONSTIPATION
     Route: 048
  24. LENDORMIN [Concomitant]
     Dosage: AS NEEDED
     Route: 048
  25. LENDORMIN [Concomitant]
     Indication: INSOMNIA
     Route: 048
  26. FERROMIA [Concomitant]
     Dosage: AS NEEDED
     Route: 048
  27. FERROMIA [Concomitant]
     Indication: ANAEMIA
     Route: 048
  28. LAXOBERON [Concomitant]
     Indication: CONSTIPATION
     Dosage: 10-15 DROPS
     Route: 048
  29. MORPHINE HCL ELIXIR [Concomitant]
     Route: 054
  30. MORPHINE HCL ELIXIR [Concomitant]
     Indication: PAIN
     Route: 054
  31. SERENACE [Concomitant]
     Dosage: INTRAVENOUS INJECTION
     Route: 048
  32. SERENACE [Concomitant]
     Route: 048
  33. SERENACE [Concomitant]
     Indication: INSOMNIA
     Route: 048
  34. SELBEX [Concomitant]
     Route: 048
  35. SELBEX [Concomitant]
     Indication: GASTROINTESTINAL DISORDER THERAPY
     Route: 048
  36. VOLTAREN [Concomitant]
     Route: 054
  37. VOLTAREN [Concomitant]
     Indication: PAIN
     Dosage: AS NEEDED
     Route: 054
  38. EULAX 10% [Concomitant]
     Indication: SENILE PRURITUS

REACTIONS (2)
  - DELIRIUM [None]
  - RESPIRATORY FAILURE [None]
